FAERS Safety Report 18263972 (Version 3)
Quarter: 2023Q2

REPORT INFORMATION
  Report Type: Report from Study
  Country: FR (occurrence: FR)
  Receive Date: 20200914
  Receipt Date: 20230410
  Transmission Date: 20230721
  Serious: Yes (Other)
  Sender: FDA-Public Use
  Company Number: FR-AMGEN-FRANI2020081122

PATIENT
  Age: 69 Year
  Sex: Female
  Weight: 45 kg

DRUGS (26)
  1. BLINATUMOMAB [Suspect]
     Active Substance: BLINATUMOMAB
     Indication: Acute lymphocytic leukaemia
     Dosage: 28 MICROGRAM, QD
     Route: 042
     Dates: start: 20200203
  2. BLINATUMOMAB [Suspect]
     Active Substance: BLINATUMOMAB
     Dosage: 9 MICROGRAM, QD
     Route: 042
  3. RETINOL [Concomitant]
     Active Substance: RETINOL
     Dosage: 1 UNK
     Dates: start: 20200208, end: 20200217
  4. ALLOPURINOL [Concomitant]
     Active Substance: ALLOPURINOL
     Dosage: 200 MILLIGRAM
     Dates: start: 20200203, end: 20200217
  5. ALPRAZOLAM [Concomitant]
     Active Substance: ALPRAZOLAM
     Dosage: 0.5 MILLIGRAM
     Dates: start: 20200203, end: 20211015
  6. AMLODIPINE [Concomitant]
     Active Substance: AMLODIPINE BESYLATE
     Dosage: 5 MILLIGRAM
     Dates: start: 20200203, end: 20200215
  7. ENTECAVIR [Concomitant]
     Active Substance: ENTECAVIR
     Dosage: 0.5 MILLIGRAM
  8. JANUVIA [Concomitant]
     Active Substance: SITAGLIPTIN PHOSPHATE
     Dosage: 50 MILLIGRAM
     Dates: start: 2010, end: 202008
  9. LEVOTHYROXINE [Concomitant]
     Active Substance: LEVOTHYROXINE
     Dosage: 50 MICROGRAM
  10. METFORMIN HYDROCHLORIDE [Concomitant]
     Active Substance: METFORMIN HYDROCHLORIDE
     Dosage: 500 MILLIGRAM
     Dates: start: 2010, end: 20211015
  11. PERINDOPRIL [Concomitant]
     Active Substance: PERINDOPRIL
     Dosage: 4 MILLIGRAM
     Dates: start: 2015, end: 20211015
  12. REPAGLINIDE [Concomitant]
     Active Substance: REPAGLINIDE
     Dosage: 2 MILLIGRAM
     Dates: start: 20200203, end: 20211015
  13. VALACYCLOVIR HYDROCHLORIDE [Concomitant]
     Active Substance: VALACYCLOVIR HYDROCHLORIDE
     Dosage: 500 MILLIGRAM
     Dates: start: 20191107, end: 20211015
  14. UMULINE [Concomitant]
     Active Substance: INSULIN HUMAN
     Dosage: 11 INTERNATIONAL UNIT
     Dates: start: 20200204, end: 20211015
  15. CHOLECALCIFEROL [Concomitant]
     Active Substance: CHOLECALCIFEROL
     Dosage: 0.625 UNK
     Dates: start: 20200204, end: 20211015
  16. REPAGLINIDE [Concomitant]
     Active Substance: REPAGLINIDE
     Dosage: 2 MILLIGRAM
     Dates: start: 2010, end: 20200807
  17. BACTRIM [Concomitant]
     Active Substance: SULFAMETHOXAZOLE\TRIMETHOPRIM
     Dosage: 800 MILLIGRAM
     Dates: start: 20191107, end: 20211015
  18. RACECADOTRIL [Concomitant]
     Active Substance: RACECADOTRIL
     Dosage: 100 MILLIGRAM
     Dates: start: 20191107, end: 20200518
  19. MONTMORILLONITE [Concomitant]
     Active Substance: MONTMORILLONITE
     Dosage: 1 UNK
     Dates: start: 20191107, end: 20200514
  20. PHLOROGLUCINOL [Concomitant]
     Active Substance: PHLOROGLUCINOL
     Dosage: 80 MILLIGRAM
     Dates: start: 20191107, end: 20200514
  21. METOCLOPRAMIDE [Concomitant]
     Active Substance: METOCLOPRAMIDE
     Dosage: 10 MILLIGRAM
     Dates: start: 20191107, end: 20211015
  22. MAGNESIUM [Concomitant]
     Active Substance: MAGNESIUM
     Dosage: 1 GRAM
     Dates: start: 20200213, end: 20210217
  23. ATORVASTATIN [Concomitant]
     Active Substance: ATORVASTATIN
     Dosage: 10 MILLIGRAM
     Dates: start: 2015, end: 20211015
  24. VITAMIN K1 [Concomitant]
     Active Substance: PHYTONADIONE
     Dosage: 40 MILLIGRAM
     Dates: start: 20200203, end: 20200217
  25. EUPANTOL [Concomitant]
     Active Substance: PANTOPRAZOLE SODIUM
     Dosage: 40 MILLIGRAM
     Dates: start: 20200203, end: 20200217
  26. SODIUM BICARBONATE [Concomitant]
     Active Substance: SODIUM BICARBONATE
     Dosage: 300 MILLILITER
     Dates: start: 20200203, end: 20200217

REACTIONS (4)
  - Hyperkalaemia [Recovered/Resolved]
  - Confusional state [Recovered/Resolved]
  - Pyrexia [Recovered/Resolved]
  - Stool analysis abnormal [Recovered/Resolved]

NARRATIVE: CASE EVENT DATE: 20200316
